FAERS Safety Report 18872832 (Version 1)
Quarter: 2021Q1

REPORT INFORMATION
  Report Type: Spontaneous
  Country: US (occurrence: US)
  Receive Date: 20210209
  Receipt Date: 20210209
  Transmission Date: 20210420
  Serious: No
  Sender: FDA-Public Use
  Company Number: None

PATIENT
  Age: 78 Year
  Sex: Female

DRUGS (24)
  1. BREO ELLIPTA [Concomitant]
     Active Substance: FLUTICASONE FUROATE\VILANTEROL TRIFENATATE
  2. IPRATROPIUM [Concomitant]
     Active Substance: IPRATROPIUM
  3. METOPROL TAR [Concomitant]
  4. OMEPRAZOLE. [Concomitant]
     Active Substance: OMEPRAZOLE
  5. PIOGLITAZONE. [Concomitant]
     Active Substance: PIOGLITAZONE
  6. POT CHLORIDE ER [Concomitant]
  7. SMZ/TMP DS [Concomitant]
     Active Substance: SULFAMETHOXAZOLE\TRIMETHOPRIM
  8. BUMETANIDE. [Concomitant]
     Active Substance: BUMETANIDE
  9. TRAMADOL HCL [Concomitant]
     Active Substance: TRAMADOL HYDROCHLORIDE
  10. CARAFATE [Concomitant]
     Active Substance: SUCRALFATE
  11. DICLOFENAC GEL [Concomitant]
     Active Substance: DICLOFENAC
  12. FUROSEMIDE. [Concomitant]
     Active Substance: FUROSEMIDE
  13. LEVOTHYROXIN [Concomitant]
     Active Substance: LEVOTHYROXINE
  14. METOLAZONE. [Concomitant]
     Active Substance: METOLAZONE
  15. RAYALDEE [Concomitant]
     Active Substance: CALCIFEDIOL
  16. ROSUVASTATIN. [Concomitant]
     Active Substance: ROSUVASTATIN
  17. ACTOS [Concomitant]
     Active Substance: PIOGLITAZONE HYDROCHLORIDE
  18. DESLORATADIN [Concomitant]
     Active Substance: DESLORATADINE
  19. SPIRIVA [Concomitant]
     Active Substance: TIOTROPIUM BROMIDE MONOHYDRATE
  20. LACTULOSE. [Concomitant]
     Active Substance: LACTULOSE
  21. SMZ/TMP [Concomitant]
     Active Substance: SULFAMETHOXAZOLE\TRIMETHOPRIM
  22. RETACRIT [Suspect]
     Active Substance: EPOETIN ALFA-EPBX
     Route: 058
     Dates: start: 20191109, end: 20210208
  23. IRBESARTAN. [Concomitant]
     Active Substance: IRBESARTAN
  24. ONDANSETRON [Concomitant]
     Active Substance: ONDANSETRON

REACTIONS (2)
  - Therapy interrupted [None]
  - Dialysis [None]

NARRATIVE: CASE EVENT DATE: 20210208
